FAERS Safety Report 9366962 (Version 2)
Quarter: 2013Q4

REPORT INFORMATION
  Report Type: Other
  Country: FR (occurrence: FR)
  Receive Date: 20130625
  Receipt Date: 20131106
  Transmission Date: 20140711
  Serious: Yes (Hospitalization)
  Sender: FDA-Public Use
  Company Number: FR-CUBIST PHARMACEUTICALS, INC.-2013CBST000532

PATIENT
  Sex: 0

DRUGS (9)
  1. CUBICIN [Suspect]
     Indication: PRODUCT USED FOR UNKNOWN INDICATION
     Dosage: UNK UNK, UNK
     Route: 065
     Dates: start: 20121030, end: 20121128
  2. CUBICIN [Suspect]
     Dosage: UNK
     Route: 065
     Dates: start: 20121205, end: 20121219
  3. TAZOCILLINE [Suspect]
     Indication: PRODUCT USED FOR UNKNOWN INDICATION
     Dosage: UNK UNK UNK
     Route: 065
     Dates: start: 20121030, end: 20121127
  4. DALACIN /00166002/ [Suspect]
     Indication: PRODUCT USED FOR UNKNOWN INDICATION
     Dosage: UNK UNK, UNK
     Route: 065
     Dates: start: 20121101, end: 20121205
  5. DALACIN /00166002/ [Suspect]
     Dosage: UNK, UNK, UNK
     Route: 065
     Dates: start: 20130402
  6. CANCIDAS [Suspect]
     Indication: PRODUCT USED FOR UNKNOWN INDICATION
     Dosage: UNK UNK, UNK
     Route: 065
     Dates: start: 20121109, end: 20121116
  7. AMBISOME [Suspect]
     Indication: PRODUCT USED FOR UNKNOWN INDICATION
     Dosage: UNK UNK, UNK
     Route: 065
     Dates: start: 20121116, end: 20121129
  8. AMBISOME [Suspect]
     Dosage: UNK
     Route: 065
     Dates: start: 20121205, end: 20121217
  9. OFLOCET                            /00731801/ [Concomitant]
     Indication: PRODUCT USED FOR UNKNOWN INDICATION
     Route: 065
     Dates: start: 20121129

REACTIONS (1)
  - Dermatitis exfoliative [Recovered/Resolved]
